FAERS Safety Report 20505744 (Version 1)
Quarter: 2022Q1

REPORT INFORMATION
  Report Type: Spontaneous
  Country: US (occurrence: None)
  Receive Date: 20220223
  Receipt Date: 20220223
  Transmission Date: 20220424
  Serious: No
  Sender: FDA-Public Use
  Company Number: US-Hikma Pharmaceuticals USA Inc.-US-H14001-21-04346

PATIENT
  Sex: Male

DRUGS (1)
  1. FLUTICASONE PROPIONATE [Suspect]
     Active Substance: FLUTICASONE PROPIONATE
     Indication: Nasal discomfort
     Dosage: ONE IN THE MORNING AND ONE AT NIGHT, IN EACH NOSTRIL
     Route: 045

REACTIONS (4)
  - Headache [Unknown]
  - Dizziness [Unknown]
  - Sensation of foreign body [Unknown]
  - Head discomfort [Unknown]
